FAERS Safety Report 10725319 (Version 1)
Quarter: 2015Q1

REPORT INFORMATION
  Report Type: Spontaneous
  Country: JP (occurrence: JP)
  Receive Date: 20150120
  Receipt Date: 20150120
  Transmission Date: 20150721
  Serious: Yes (Other)
  Sender: FDA-Public Use
  Company Number: PHHY2014JP149378

PATIENT
  Age: 36 Year
  Sex: Female

DRUGS (5)
  1. RITODRINE [Suspect]
     Active Substance: RITODRINE
     Indication: PRODUCT USED FOR UNKNOWN INDICATION
     Route: 042
  2. AZITHROMYCIN [Suspect]
     Active Substance: AZITHROMYCIN ANHYDROUS
     Indication: AMNIOTIC CAVITY INFECTION
     Route: 065
  3. CEFEPIME [Suspect]
     Active Substance: CEFEPIME\CEFEPIME HYDROCHLORIDE
     Indication: AMNIOTIC CAVITY INFECTION
     Route: 065
  4. FLUMARIN//FLOMOXEF SODIUM [Suspect]
     Active Substance: FLOMOXEF SODIUM
     Indication: PRODUCT USED FOR UNKNOWN INDICATION
     Route: 042
  5. AMBISOME [Suspect]
     Active Substance: AMPHOTERICIN B
     Indication: AMNIOTIC CAVITY INFECTION
     Route: 065

REACTIONS (7)
  - Amniotic cavity infection [Unknown]
  - Maternal exposure during pregnancy [Unknown]
  - Pyrexia [Recovered/Resolved]
  - C-reactive protein increased [Unknown]
  - Uterine tenderness [Unknown]
  - Premature rupture of membranes [Unknown]
  - Blood beta-D-glucan increased [Unknown]
